FAERS Safety Report 19847541 (Version 1)
Quarter: 2021Q3

REPORT INFORMATION
  Report Type: Spontaneous
  Country: CA (occurrence: CA)
  Receive Date: 20210917
  Receipt Date: 20210917
  Transmission Date: 20211014
  Serious: Yes (Hospitalization, Other)
  Sender: FDA-Public Use
  Company Number: CA-PFIZER INC-202101198362

PATIENT
  Age: 68 Year
  Sex: Female
  Weight: 102 kg

DRUGS (9)
  1. HUMIRA [Suspect]
     Active Substance: ADALIMUMAB
     Dosage: 40 MG 2 WEEKLY
     Dates: end: 20210721
  2. AZATHIOPRINE. [Suspect]
     Active Substance: AZATHIOPRINE
     Dosage: UNK
  3. OTEZLA [Suspect]
     Active Substance: APREMILAST
     Dosage: UNK
  4. COSENTYX [Suspect]
     Active Substance: SECUKINUMAB
     Dosage: UNK
  5. PREDNISONE. [Concomitant]
     Active Substance: PREDNISONE
     Dosage: 50 MG, 1X/DAY, TAPERED TO 12.5 MG
     Route: 065
  6. RUXIENCE [RITUXIMAB] [Concomitant]
     Active Substance: RITUXIMAB
     Indication: MICROSCOPIC POLYANGIITIS
  7. METHOTREXATE SODIUM. [Suspect]
     Active Substance: METHOTREXATE SODIUM
     Indication: PSORIATIC ARTHROPATHY
     Dosage: 15 MG, WEEKLY
     Route: 065
     Dates: start: 20130401
  8. ERELZI [Suspect]
     Active Substance: ETANERCEPT-SZZS
     Dosage: UNK
  9. RUXIENCE [RITUXIMAB] [Concomitant]
     Active Substance: RITUXIMAB
     Indication: GRANULOMATOSIS WITH POLYANGIITIS
     Dosage: 790 MG, WEEKLY FOR 4 WEEKS
     Route: 042
     Dates: start: 20210909

REACTIONS (13)
  - Deafness unilateral [Not Recovered/Not Resolved]
  - Dysphonia [Unknown]
  - Chronic kidney disease [Not Recovered/Not Resolved]
  - Pulmonary haemorrhage [Unknown]
  - Renal impairment [Not Recovered/Not Resolved]
  - Vasculitis [Unknown]
  - Malaise [Unknown]
  - Nonalcoholic fatty liver disease [Not Recovered/Not Resolved]
  - Haemoptysis [Unknown]
  - Episcleritis [Unknown]
  - Weight decreased [Not Recovered/Not Resolved]
  - Myalgia [Unknown]
  - Headache [Unknown]

NARRATIVE: CASE EVENT DATE: 2021
